FAERS Safety Report 22174029 (Version 1)
Quarter: 2023Q2

REPORT INFORMATION
  Report Type: Spontaneous
  Country: US (occurrence: US)
  Receive Date: 20230405
  Receipt Date: 20230405
  Transmission Date: 20230722
  Serious: No
  Sender: FDA-Public Use
  Company Number: US-Santen Inc-2023-USA-002254

PATIENT
  Sex: Male

DRUGS (2)
  1. TOBRADEX ST [Suspect]
     Active Substance: DEXAMETHASONE\TOBRAMYCIN
     Indication: Conjunctivitis
     Dosage: 4 DROPS DAILY IN LEFT EYE FOR 1 WEEK
     Route: 047
     Dates: start: 20230301
  2. TOBRADEX ST [Suspect]
     Active Substance: DEXAMETHASONE\TOBRAMYCIN
     Dosage: 2 DROPS DAILY IN LEFT EYE FOR 1 WEEK
     Route: 047

REACTIONS (1)
  - Vitreous floaters [Not Recovered/Not Resolved]

NARRATIVE: CASE EVENT DATE: 20230301
